FAERS Safety Report 15077520 (Version 2)
Quarter: 2018Q3

REPORT INFORMATION
  Report Type: Report from Study
  Country: MX (occurrence: MX)
  Receive Date: 20180627
  Receipt Date: 20180716
  Transmission Date: 20181010
  Serious: Yes (Other)
  Sender: FDA-Public Use
  Company Number: MX-UCBSA-2018027480

PATIENT
  Age: 6 Year
  Sex: Female
  Weight: 18 kg

DRUGS (4)
  1. LACOSAMIDE. [Suspect]
     Active Substance: LACOSAMIDE
     Dosage: 7.5 ML, 2X/DAY (BID)
     Route: 048
     Dates: start: 2018
  2. LACOSAMIDE. [Suspect]
     Active Substance: LACOSAMIDE
     Dosage: 5 ML, 2X/DAY (BID)
     Route: 048
  3. KEPPRA [Suspect]
     Active Substance: LEVETIRACETAM
     Indication: EPILEPSY
     Dosage: 5 ML, 2X/DAY (BID)
     Dates: start: 20180616
  4. LACOSAMIDE. [Suspect]
     Active Substance: LACOSAMIDE
     Indication: EPILEPSY
     Dosage: 4 ML, 2X/DAY (BID)
     Route: 048
     Dates: start: 201804, end: 2018

REACTIONS (8)
  - Partial seizures [Recovered/Resolved]
  - Febrile convulsion [Recovered/Resolved]
  - Initial insomnia [Unknown]
  - Abnormal behaviour [Unknown]
  - Gastric infection [Unknown]
  - Off label use [Unknown]
  - Irritability [Not Recovered/Not Resolved]
  - Somnolence [Not Recovered/Not Resolved]

NARRATIVE: CASE EVENT DATE: 201804
